FAERS Safety Report 11926067 (Version 1)
Quarter: 2016Q1

REPORT INFORMATION
  Report Type: Report from Study
  Country: US (occurrence: US)
  Receive Date: 20160119
  Receipt Date: 20160119
  Transmission Date: 20160526
  Serious: Yes (Death, Hospitalization, Other)
  Sender: FDA-Public Use
  Company Number: US-ASTRAZENECA-2015SE44162

PATIENT
  Age: 923 Month
  Sex: Female

DRUGS (2)
  1. OLAPARIB [Suspect]
     Active Substance: OLAPARIB
     Indication: OVARIAN CANCER
     Dosage: TWO TIMES A DAY
     Route: 048
  2. OLAPARIB [Suspect]
     Active Substance: OLAPARIB
     Indication: OVARIAN CANCER
     Route: 048
     Dates: start: 20150531

REACTIONS (11)
  - Kidney infection [Unknown]
  - Nausea [Unknown]
  - Laboratory test abnormal [Unknown]
  - Adverse drug reaction [Unknown]
  - Death [Fatal]
  - General physical health deterioration [Unknown]
  - Balance disorder [Unknown]
  - Sepsis [Unknown]
  - Hypophagia [Unknown]
  - Pain [Unknown]
  - Neuropathy peripheral [Unknown]

NARRATIVE: CASE EVENT DATE: 201505
